FAERS Safety Report 5518395-4 (Version None)
Quarter: 2007Q4

REPORT INFORMATION
  Report Type: 
  Country: None (occurrence: None)
  Receive Date: 20071115
  Receipt Date: 20071109
  Transmission Date: 20080405
  Serious: Yes (Hospitalization)
  Sender: FDA-Public Use
  Company Number: JP-MERCK-0711USA02838

PATIENT

DRUGS (2)
  1. PEPCID [Suspect]
     Indication: GASTROENTERITIS VIRAL
     Route: 051
  2. PRIMPERAN INJ [Suspect]
     Route: 051

REACTIONS (1)
  - ANAPHYLACTIC SHOCK [None]
